FAERS Safety Report 5382983-9 (Version None)
Quarter: 2007Q3

REPORT INFORMATION
  Report Type: 
  Country: None (occurrence: None)
  Receive Date: 20070710
  Receipt Date: 20070706
  Transmission Date: 20080115
  Serious: Yes (Life-Threatening)
  Sender: FDA-Public Use
  Company Number: B0472282A

PATIENT
  Age: 24 Year
  Sex: Female

DRUGS (2)
  1. CLAMOXYL IV [Suspect]
     Dosage: 2G SINGLE DOSE
     Route: 042
     Dates: start: 20070407, end: 20070407
  2. PAROXETINE HCL [Suspect]
     Indication: DEPRESSION
     Dates: start: 20060601, end: 20060601

REACTIONS (8)
  - ANAPHYLACTIC SHOCK [None]
  - DRUG EXPOSURE DURING PREGNANCY [None]
  - ERYTHEMA [None]
  - HYPOTENSION [None]
  - MALAISE [None]
  - TACHYCARDIA [None]
  - UTERINE HYPERTONUS [None]
  - VOMITING [None]
